FAERS Safety Report 25483974 (Version 1)
Quarter: 2025Q2

REPORT INFORMATION
  Report Type: Spontaneous
  Country: SG (occurrence: SG)
  Receive Date: 20250626
  Receipt Date: 20250626
  Transmission Date: 20250716
  Serious: Yes (Other)
  Sender: PFIZER
  Company Number: SG-PFIZER INC-PV202500075637

PATIENT
  Age: 37 Year
  Sex: Female

DRUGS (2)
  1. CYTARABINE [Suspect]
     Active Substance: CYTARABINE
     Indication: Acute myelomonocytic leukaemia
  2. ALLOPURINOL [Suspect]
     Active Substance: ALLOPURINOL

REACTIONS (1)
  - Hidradenitis [Recovered/Resolved]
